FAERS Safety Report 17401261 (Version 9)
Quarter: 2020Q2

REPORT INFORMATION
  Report Type: Report from Study
  Country: CA (occurrence: CA)
  Receive Date: 20200211
  Receipt Date: 20200626
  Transmission Date: 20200713
  Serious: Yes (Other)
  Sender: FDA-Public Use
  Company Number: NVSC2020CA006619

PATIENT
  Age: 9 Year
  Sex: Male

DRUGS (10)
  1. ERELZI [Suspect]
     Active Substance: ETANERCEPT-SZZS
     Dosage: 1 DF, QW
     Route: 058
     Dates: start: 20200127
  2. ERELZI [Suspect]
     Active Substance: ETANERCEPT-SZZS
     Dosage: 1 DF, QW
     Route: 058
     Dates: start: 20200525
  3. ERELZI [Suspect]
     Active Substance: ETANERCEPT-SZZS
     Dosage: 1 DF, QW
     Route: 058
     Dates: start: 20200211
  4. ERELZI [Suspect]
     Active Substance: ETANERCEPT-SZZS
     Dosage: 1 DF, QW
     Route: 058
     Dates: start: 20200323
  5. ERELZI [Suspect]
     Active Substance: ETANERCEPT-SZZS
     Dosage: 1 DF, QW
     Route: 058
     Dates: start: 20200427
  6. ERELZI [Suspect]
     Active Substance: ETANERCEPT-SZZS
     Indication: JUVENILE IDIOPATHIC ARTHRITIS
     Dosage: 1 DF, QW
     Route: 058
     Dates: start: 20191213
  7. ERELZI [Suspect]
     Active Substance: ETANERCEPT-SZZS
     Dosage: 1 DF, QW
     Route: 058
     Dates: start: 20200203
  8. ERELZI [Suspect]
     Active Substance: ETANERCEPT-SZZS
     Dosage: 1 DF, QW
     Route: 058
     Dates: start: 20200420
  9. ERELZI [Suspect]
     Active Substance: ETANERCEPT-SZZS
     Dosage: 1 DF, QW
     Route: 058
     Dates: start: 20200406
  10. ERELZI [Suspect]
     Active Substance: ETANERCEPT-SZZS
     Dosage: 1 DF, QW
     Route: 058
     Dates: start: 20200413

REACTIONS (4)
  - Heart rate increased [Unknown]
  - Blood pressure abnormal [Unknown]
  - Respiratory rate decreased [Unknown]
  - Injection site pain [Unknown]

NARRATIVE: CASE EVENT DATE: 20200330
